FAERS Safety Report 4478237-5 (Version None)
Quarter: 2004Q3

REPORT INFORMATION
  Report Type: 
  Country: None (occurrence: None)
  Receive Date: 20040923
  Receipt Date: 20040726
  Transmission Date: 20050211
  Serious: No
  Sender: FDA-Public Use
  Company Number: USA040773692

PATIENT
  Age: 61 Year
  Sex: Female

DRUGS (5)
  1. FORTEO [Suspect]
     Indication: OSTEOPOROSIS
     Dosage: 20 UG
     Dates: start: 20040625
  2. FARNATE (TRANYLCYPROMINE) [Concomitant]
  3. METHYLPHENIDATE HCL [Concomitant]
  4. BEXTRA [Concomitant]
  5. CALTRATE (CALCIUM CARBONATE) [Concomitant]

REACTIONS (3)
  - LETHARGY [None]
  - NAIL INFECTION [None]
  - SLEEP DISORDER [None]
